FAERS Safety Report 9334341 (Version 1)
Quarter: 2013Q2

REPORT INFORMATION
  Report Type: Spontaneous
  Country: US (occurrence: US)
  Receive Date: 20130606
  Receipt Date: 20130606
  Transmission Date: 20140414
  Serious: No
  Sender: FDA-Public Use
  Company Number: US-AMGEN-USASP2013003114

PATIENT
  Age: 86 Year
  Sex: Female

DRUGS (18)
  1. PROLIA [Suspect]
     Indication: OSTEOPOROSIS POSTMENOPAUSAL
     Dosage: UNK
     Dates: start: 20130114
  2. LYRICA [Concomitant]
     Dosage: 2 UNK, QD
  3. CITALOPRAM [Concomitant]
     Dosage: 10 MG, QD
  4. LEVOTHYROXINE [Concomitant]
     Dosage: 0.75 UNK, QD
  5. FISH OIL [Concomitant]
     Dosage: 300 MG, QD
  6. BAYER ASPIRIN [Concomitant]
  7. VITAMIN D3 [Concomitant]
     Dosage: 2000 IU, QD
  8. OSCAL                              /00514701/ [Concomitant]
     Dosage: 1 UNK, TID
  9. CENTRUM                            /02217401/ [Concomitant]
  10. IMODIUM [Concomitant]
     Indication: ABDOMINAL DISCOMFORT
     Dosage: UNK UNK, AS NECESSARY
  11. FOLIC ACID [Concomitant]
     Dosage: 800 MUG, QD
  12. COQ10                              /00517201/ [Concomitant]
     Dosage: 50 MG, QD
  13. MSM [Concomitant]
     Dosage: 1000 MG, QD
  14. PRESERVISION [Concomitant]
     Dosage: 1 UNK, QD
  15. FLORASTOR [Concomitant]
  16. LIPITOR [Concomitant]
     Dosage: 20 MG, QD
  17. ENABLEX                            /01760401/ [Concomitant]
     Dosage: 7.5 MG, QD
  18. FORTEO [Concomitant]
     Dosage: UNK
     Dates: end: 20130114

REACTIONS (1)
  - Abdominal discomfort [Recovered/Resolved]
